FAERS Safety Report 8605597-3 (Version None)
Quarter: 2012Q3

REPORT INFORMATION
  Report Type: 
  Country: None (occurrence: None)
  Receive Date: 20120820
  Receipt Date: 20120810
  Transmission Date: 20120928
  Serious: Yes (Other)
  Sender: FDA-Public Use
  Company Number: US-ASTRAZENECA-2012SE57689

PATIENT
  Sex: Female

DRUGS (2)
  1. NEXIUM [Suspect]
     Route: 048
  2. CRESTOR [Suspect]
     Route: 048

REACTIONS (6)
  - RHEUMATOID ARTHRITIS [None]
  - LUNG NEOPLASM MALIGNANT [None]
  - INTENTIONAL DRUG MISUSE [None]
  - ALOPECIA [None]
  - BLOOD CHOLESTEROL INCREASED [None]
  - MALAISE [None]
